FAERS Safety Report 20165630 (Version 12)
Quarter: 2023Q1

REPORT INFORMATION
  Report Type: Report from Study
  Country: MX (occurrence: MX)
  Receive Date: 20211209
  Receipt Date: 20230331
  Transmission Date: 20230418
  Serious: Yes (Other)
  Sender: FDA-Public Use
  Company Number: MX-NOVARTISPH-NVSC2021MX272980

PATIENT
  Age: 34 Year
  Sex: Female
  Weight: 64 kg

DRUGS (10)
  1. GILENYA [Suspect]
     Active Substance: FINGOLIMOD HYDROCHLORIDE
     Indication: Multiple sclerosis
     Dosage: 0.5 MG, QD
     Route: 048
     Dates: start: 20211117, end: 20211214
  2. GILENYA [Suspect]
     Active Substance: FINGOLIMOD HYDROCHLORIDE
     Dosage: 0.5 MG, QD
     Route: 048
     Dates: start: 20220120, end: 202210
  3. GILENYA [Suspect]
     Active Substance: FINGOLIMOD HYDROCHLORIDE
     Dosage: 0.5 MG, QD
     Route: 048
     Dates: start: 202202
  4. GILENYA [Suspect]
     Active Substance: FINGOLIMOD HYDROCHLORIDE
     Dosage: 0.5 MG, QD
     Route: 048
     Dates: start: 202206
  5. GILENYA [Suspect]
     Active Substance: FINGOLIMOD HYDROCHLORIDE
     Dosage: 0.5 MG
     Route: 048
     Dates: start: 202212
  6. GILENYA [Suspect]
     Active Substance: FINGOLIMOD HYDROCHLORIDE
     Dosage: 0.5 MG, QD
     Route: 048
     Dates: start: 2022
  7. INTERFERON [Concomitant]
     Active Substance: INTERFERON
     Indication: Multiple sclerosis
     Dosage: 12000 IU
     Route: 030
     Dates: start: 2019, end: 202111
  8. INTERFERON [Concomitant]
     Active Substance: INTERFERON
     Dosage: 1200 IU, EVERY 3RD DAY
     Route: 058
     Dates: start: 20211214, end: 20220120
  9. AMITRIPTYLINE [Concomitant]
     Active Substance: AMITRIPTYLINE
     Indication: Bladder disorder
     Dosage: 1 DOSAGE FORM, QD
     Route: 048
     Dates: start: 2019
  10. DIPHENIDOL [Concomitant]
     Active Substance: DIPHENIDOL
     Indication: Limb discomfort
     Dosage: UNK
     Route: 065

REACTIONS (33)
  - Neuropathy peripheral [Unknown]
  - Multiple sclerosis relapse [Not Recovered/Not Resolved]
  - Pain [Not Recovered/Not Resolved]
  - Gait disturbance [Not Recovered/Not Resolved]
  - Throat tightness [Unknown]
  - Dental discomfort [Unknown]
  - Muscle spasms [Unknown]
  - Anxiety [Not Recovered/Not Resolved]
  - Hypoaesthesia [Not Recovered/Not Resolved]
  - Speech disorder [Unknown]
  - Weight increased [Recovered/Resolved]
  - Depressive symptom [Not Recovered/Not Resolved]
  - Stress [Unknown]
  - Lipoma [Not Recovered/Not Resolved]
  - Scoliosis [Not Recovered/Not Resolved]
  - Peripheral swelling [Not Recovered/Not Resolved]
  - Arthralgia [Unknown]
  - Pain in extremity [Not Recovered/Not Resolved]
  - Fatigue [Not Recovered/Not Resolved]
  - Weight decreased [Recovered/Resolved]
  - Dizziness [Recovered/Resolved]
  - Headache [Not Recovered/Not Resolved]
  - Dizziness [Unknown]
  - COVID-19 [Recovered/Resolved]
  - Oropharyngeal pain [Not Recovered/Not Resolved]
  - Dry mouth [Recovered/Resolved]
  - Epistaxis [Unknown]
  - Decreased appetite [Recovered/Resolved]
  - Hypersomnia [Recovered/Resolved]
  - Urinary tract infection [Not Recovered/Not Resolved]
  - Nausea [Recovered/Resolved]
  - Product supply issue [Unknown]
  - Product dose omission issue [Unknown]

NARRATIVE: CASE EVENT DATE: 20211117
